FAERS Safety Report 4717541-X (Version None)
Quarter: 2005Q3

REPORT INFORMATION
  Report Type: 
  Country: None (occurrence: None)
  Receive Date: 20050711
  Receipt Date: 20050331
  Transmission Date: 20060218
  Serious: No
  Sender: FDA-Public Use
  Company Number: A03200500927

PATIENT
  Age: 42 Year
  Sex: Female

DRUGS (2)
  1. UROXATRAL [Suspect]
     Indication: INCONTINENCE
     Dosage: ORAL
     Route: 048
     Dates: start: 20050301
  2. DITROPAN [Suspect]
     Indication: INCONTINENCE
     Dosage: ORAL
     Route: 048
     Dates: start: 20050301

REACTIONS (1)
  - HEADACHE [None]
